FAERS Safety Report 9787564 (Version 1)
Quarter: 2013Q4

REPORT INFORMATION
  Report Type: Spontaneous
  Country: US (occurrence: US)
  Receive Date: 20131230
  Receipt Date: 20131230
  Transmission Date: 20140711
  Serious: No
  Sender: FDA-Public Use
  Company Number: US-009507513-1312USA011844

PATIENT
  Age: 82 Year
  Sex: Male

DRUGS (1)
  1. NASONEX [Suspect]
     Indication: SEASONAL ALLERGY
     Dosage: STRENGTH 50
     Route: 045
     Dates: start: 201311, end: 201312

REACTIONS (1)
  - Adverse event [Recovered/Resolved]
